FAERS Safety Report 9241521 (Version 3)
Quarter: 2014Q2

REPORT INFORMATION
  Report Type: Spontaneous
  Country: US (occurrence: US)
  Receive Date: 20130419
  Receipt Date: 20140423
  Transmission Date: 20141212
  Serious: Yes (Other)
  Sender: FDA-Public Use
  Company Number: US-BAYER-2013-046929

PATIENT
  Age: 42 Year
  Sex: Female
  Weight: 61.22 kg

DRUGS (3)
  1. MIRENA [Suspect]
     Indication: CONTRACEPTION
     Dosage: 20 MCG/24HR, CONT
     Route: 015
     Dates: start: 20100606, end: 20110412
  2. SINGULAIR [Concomitant]
     Indication: ASTHMA
     Dosage: UNK
     Dates: start: 2010
  3. ATIVAN [Concomitant]
     Dosage: UNK
     Dates: start: 20070409, end: 20110405

REACTIONS (8)
  - Device dislocation [None]
  - Genital haemorrhage [None]
  - Device difficult to use [None]
  - Device issue [None]
  - Injury [None]
  - Abdominal pain [None]
  - Pelvic pain [None]
  - Emotional distress [None]
